FAERS Safety Report 8430182-6 (Version None)
Quarter: 2012Q2

REPORT INFORMATION
  Report Type: 
  Country: None (occurrence: None)
  Receive Date: 20120612
  Receipt Date: 20120604
  Transmission Date: 20120825
  Serious: Yes (Death, Hospitalization)
  Sender: FDA-Public Use
  Company Number: JP-ROCHE-637805

PATIENT
  Sex: Male
  Weight: 55 kg

DRUGS (19)
  1. ACTEMRA [Suspect]
     Route: 041
     Dates: start: 20090313, end: 20090313
  2. LOXONIN [Concomitant]
     Indication: RHEUMATOID ARTHRITIS
     Dosage: DRUG NAME REPORTED AS LOXONIN (LOXOPROFEN SODIUM).
     Route: 048
  3. PURSENNID [Concomitant]
     Indication: CONSTIPATION
     Dosage: FREQUENCY REPORTED AS ^TAKEN AS NEEDED: 12MG/DAY^.
     Route: 048
  4. BASEN [Concomitant]
     Indication: DIABETES MELLITUS
     Dosage: DRUG NAME REPORTED AS BASEN OD.
     Route: 048
  5. DIOVAN [Concomitant]
     Indication: HYPERTENSION
     Route: 048
  6. ACTEMRA [Suspect]
     Indication: RHEUMATOID ARTHRITIS
     Route: 041
     Dates: start: 20081217, end: 20081217
  7. ACTEMRA [Suspect]
     Route: 041
     Dates: start: 20090410, end: 20090410
  8. ACTEMRA [Suspect]
     Route: 041
  9. PREDNISOLONE [Concomitant]
     Indication: RHEUMATOID ARTHRITIS
     Dosage: DOSE FORM REPORTED AS ^ORAL FORMULATION (NOT OTHERWISE SPECIFIED)^.
     Route: 048
     Dates: start: 20081120, end: 20090428
  10. RABEPRAZOLE SODIUM [Concomitant]
     Indication: PROPHYLAXIS
     Dosage: DRUG NAME REPORTED AS ^PARIET (SODIUM RABEPRAZOLE)^.
     Route: 048
  11. PLAVIX [Concomitant]
     Dosage: DRUG NAME REPORTED AS PLAVIX (CLOPIDOGREL SULPHATE).
     Route: 048
  12. ALOSENN [Concomitant]
     Indication: CONSTIPATION
     Dosage: FREQUENCY REPORTED AS TAKEN AS NEEDED: 0.5G/DAY, DRUG NAME REPORTED AS ALOSENN(SENNA LEAF_SENNA POD)
     Route: 048
  13. PREDNISOLONE [Concomitant]
     Dosage: DOSE FORM REPORTED AS ^ORAL FORMULATION (NOT OTHERWISE SPECIFIED)^.
     Route: 048
  14. ASPIRIN [Concomitant]
     Dosage: DOSE FORM REPORTED AS ENTERIC.
     Route: 048
  15. LASIX [Concomitant]
     Indication: HYPERTENSION
     Dosage: DOSE FORM REPORTED AS ^ORAL FORMULATION (NOT OTHERWISE SPECIFIED)^.
     Route: 048
  16. DORAL [Concomitant]
     Indication: INSOMNIA
     Route: 048
  17. LENDORMIN [Concomitant]
     Indication: INSOMNIA
     Dosage: FREQUENCY REPORTED AS ^TAKEN AS NEEDED: 0.25MG/DAY^.
     Route: 048
  18. ACTEMRA [Suspect]
     Route: 041
     Dates: start: 20090114, end: 20090114
  19. ACTEMRA [Suspect]
     Route: 041
     Dates: start: 20090213, end: 20090213

REACTIONS (3)
  - SUDDEN DEATH [None]
  - PERIPHERAL ARTERIAL OCCLUSIVE DISEASE [None]
  - ARTHRALGIA [None]
